FAERS Safety Report 7759585-X (Version None)
Quarter: 2011Q3

REPORT INFORMATION
  Report Type: 
  Country: None (occurrence: None)
  Receive Date: 20110915
  Receipt Date: 20110902
  Transmission Date: 20111222
  Serious: Yes (Other)
  Sender: FDA-Public Use
  Company Number: 1000023731

PATIENT
  Sex: Female

DRUGS (1)
  1. ESCITALOPRAM [Suspect]

REACTIONS (7)
  - DECREASED APPETITE [None]
  - NAUSEA [None]
  - NOCTURNAL FEAR [None]
  - TACHYCARDIA [None]
  - ANORGASMIA [None]
  - SUICIDAL IDEATION [None]
  - DRUG WITHDRAWAL SYNDROME [None]
